FAERS Safety Report 23296764 (Version 2)
Quarter: 2024Q3

REPORT INFORMATION
  Report Type: Spontaneous
  Country: IT (occurrence: IT)
  Receive Date: 20231214
  Receipt Date: 20240829
  Transmission Date: 20241017
  Serious: Yes (Other)
  Sender: PFIZER
  Company Number: IT-PFIZER INC-PV202300199299

PATIENT
  Age: 13 Year
  Sex: Female

DRUGS (4)
  1. RITUXIMAB [Suspect]
     Active Substance: RITUXIMAB
     Indication: Systemic scleroderma
     Dosage: 375?MG/MQ
  2. RITUXIMAB [Suspect]
     Active Substance: RITUXIMAB
     Indication: Systemic scleroderma
  3. PREDNISONE [Concomitant]
     Active Substance: PREDNISONE
     Indication: Systemic scleroderma
     Dosage: 0.4 MG/KG, DAILY
  4. MYCOPHENOLATE MOFETIL [Concomitant]
     Active Substance: MYCOPHENOLATE MOFETIL
     Indication: Systemic scleroderma
     Dosage: 12.5 MG/KG, 2X/DAY

REACTIONS (2)
  - Anaphylactic reaction [Unknown]
  - Off label use [Unknown]
